FAERS Safety Report 13634068 (Version 1)
Quarter: 2017Q2

REPORT INFORMATION
  Report Type: Spontaneous
  Country: US (occurrence: US)
  Receive Date: 20170531
  Receipt Date: 20170531
  Transmission Date: 20170830
  Serious: No
  Sender: FDA-Public Use
  Company Number: US-ASTELLAS-1601766

PATIENT
  Sex: Female

DRUGS (2)
  1. TARCEVA [Suspect]
     Active Substance: ERLOTINIB HYDROCHLORIDE
     Indication: LUNG NEOPLASM MALIGNANT
     Route: 048
     Dates: start: 20150610
  2. TARCEVA [Suspect]
     Active Substance: ERLOTINIB HYDROCHLORIDE
     Indication: BRONCHIAL CARCINOMA
     Route: 048
     Dates: start: 20150926

REACTIONS (27)
  - Abdominal discomfort [Unknown]
  - Skin ulcer [Unknown]
  - Diarrhoea [Unknown]
  - Pruritus [Unknown]
  - Fatigue [Unknown]
  - Pain in extremity [Unknown]
  - Skin exfoliation [Unknown]
  - Onychalgia [Unknown]
  - Rash [Unknown]
  - Eye swelling [Unknown]
  - Nausea [Unknown]
  - Epistaxis [Unknown]
  - Nail disorder [Unknown]
  - Alopecia [Unknown]
  - Eye irritation [Unknown]
  - Eye pruritus [Unknown]
  - Ocular hyperaemia [Unknown]
  - Pyrexia [Unknown]
  - Localised infection [Unknown]
  - Asthenia [Unknown]
  - Blister [Unknown]
  - Musculoskeletal pain [Unknown]
  - Nasal crusting [Unknown]
  - Abdominal pain upper [Unknown]
  - Stomatitis [Unknown]
  - Nasal ulcer [Unknown]
  - Haemorrhage [Unknown]
